FAERS Safety Report 13202801 (Version 2)
Quarter: 2017Q1

REPORT INFORMATION
  Report Type: Report from Study
  Country: US (occurrence: US)
  Receive Date: 20170209
  Receipt Date: 20170321
  Transmission Date: 20170428
  Serious: Yes (Congenital Anomaly)
  Sender: FDA-Public Use
  Company Number: US-ROCHE-1822727

PATIENT
  Sex: Male
  Weight: 5.9 kg

DRUGS (1)
  1. TRASTUZUMAB [Suspect]
     Active Substance: TRASTUZUMAB
     Indication: PRODUCT USED FOR UNKNOWN INDICATION
     Dosage: DATE OF MOST RECENT DOSE: 02/NOV/2015
     Route: 064

REACTIONS (2)
  - Laryngomalacia [Not Recovered/Not Resolved]
  - Foetal exposure during pregnancy [Unknown]
